FAERS Safety Report 8657441 (Version 2)
Quarter: 2013Q3

REPORT INFORMATION
  Report Type: Spontaneous
  Country: CH (occurrence: None)
  Receive Date: 20120625
  Receipt Date: 20130827
  Transmission Date: 20140515
  Serious: Yes (Death)
  Sender: FDA-Public Use
  Company Number: 2012P1040861

PATIENT
  Age: 69 Year
  Sex: Male
  Weight: 68.95 kg

DRUGS (1)
  1. FLECAINIDE [Suspect]
     Indication: SUPRAVENTRICULAR TACHYCARDIA
     Dosage: 100 MG;QD

REACTIONS (3)
  - Arteriosclerosis [None]
  - Dry skin [None]
  - Arteriosclerosis coronary artery [None]
